FAERS Safety Report 9117886 (Version 2)
Quarter: 2013Q1

REPORT INFORMATION
  Report Type: Spontaneous
  Country: US (occurrence: US)
  Receive Date: 20130125
  Receipt Date: 20130304
  Transmission Date: 20140127
  Serious: Yes (Hospitalization, Other)
  Sender: FDA-Public Use
  Company Number: US-RB-035873-11

PATIENT
  Age: 30 None
  Sex: Female

DRUGS (7)
  1. SUBUTEX [Suspect]
     Indication: DRUG DEPENDENCE
     Route: 060
     Dates: start: 201111, end: 20120627
  2. SUBOXONE TABLET [Suspect]
     Indication: DRUG DEPENDENCE
     Dosage: 2 AND 1/2 TABS DAILY
     Route: 065
     Dates: start: 2007, end: 2010
  3. SUBOXONE TABLET [Suspect]
     Dosage: TOOK 2 1/2 TABLETS DAILY
     Route: 065
     Dates: start: 2010
  4. GENERIC BUPRENORPHINE [Suspect]
     Indication: DRUG DEPENDENCE
     Dosage: DOSING DETAILS UNKNOWN
     Route: 065
     Dates: start: 201111, end: 201206
  5. OXYCONTIN [Suspect]
     Indication: DRUG DEPENDENCE
     Dosage: 80 MG ONCE A DAY ON THREE OCCASIONS
     Route: 065
  6. PERCOCET [Suspect]
     Indication: DRUG DEPENDENCE
     Dosage: 30 MG ONCE A DAY ON TWO OCCASIONS
     Route: 065
  7. NICOTINE [Concomitant]
     Indication: PRODUCT USED FOR UNKNOWN INDICATION
     Dosage: 20 CIGARETTES PER DAY
     Route: 065
     Dates: start: 20111005, end: 20120621

REACTIONS (12)
  - Exposure during pregnancy [Recovered/Resolved]
  - Therapeutic response unexpected [Recovered/Resolved]
  - Umbilical cord around neck [Recovered/Resolved]
  - Hypoaesthesia [Recovered/Resolved]
  - Amniotic fluid volume decreased [Recovered/Resolved]
  - Nausea [Unknown]
  - Dizziness [Recovered/Resolved]
  - Heart rate increased [Recovered/Resolved]
  - Road traffic accident [Recovered/Resolved]
  - Induced labour [Recovered/Resolved]
  - Drug abuse [Recovered/Resolved]
  - Wrong technique in drug usage process [Recovered/Resolved]
